FAERS Safety Report 6775148-7 (Version None)
Quarter: 2010Q2

REPORT INFORMATION
  Report Type: 
  Country: None (occurrence: None)
  Receive Date: 20100617
  Receipt Date: 20100607
  Transmission Date: 20101027
  Serious: Yes (Death, Other)
  Sender: FDA-Public Use
  Company Number: GR-SANOFI-AVENTIS-2010SA032750

PATIENT

DRUGS (3)
  1. OXALIPLATIN [Suspect]
  2. BEVACIZUMAB [Suspect]
  3. CAPECITABINE [Suspect]
     Dosage: DAY 1-7 EACH CYCLE

REACTIONS (5)
  - ACUTE RESPIRATORY DISTRESS SYNDROME [None]
  - DIARRHOEA [None]
  - INTESTINAL PERFORATION [None]
  - NEUROTOXICITY [None]
  - NEUTROPENIA [None]
